FAERS Safety Report 6418675-4 (Version None)
Quarter: 2009Q4

REPORT INFORMATION
  Report Type: 
  Country: None (occurrence: None)
  Receive Date: 20091026
  Receipt Date: 20091013
  Transmission Date: 20100525
  Serious: Yes (Other)
  Sender: FDA-Public Use
  Company Number: ADR39622009

PATIENT
  Age: 61 Year
  Sex: Female

DRUGS (3)
  1. SIMVASTATIN [Suspect]
     Indication: PROPHYLAXIS
     Dosage: 40 MG ORAL
     Route: 048
     Dates: start: 20080513, end: 20080814
  2. ASPIRIN [Concomitant]
  3. BENDROFLUMETHIAZIDE [Concomitant]

REACTIONS (2)
  - DEPRESSION [None]
  - MENTAL DISORDER [None]
